FAERS Safety Report 8534413-3 (Version None)
Quarter: 2012Q3

REPORT INFORMATION
  Report Type: 
  Country: None (occurrence: None)
  Receive Date: 20120724
  Receipt Date: 20120720
  Transmission Date: 20120928
  Serious: Yes (Death, Other)
  Sender: FDA-Public Use
  Company Number: PHHY2012DE046453

PATIENT
  Sex: Male
  Weight: 82 kg

DRUGS (9)
  1. SPIRONOLACTONE [Concomitant]
  2. TORSEMIDE [Concomitant]
  3. CARVEDILOL [Concomitant]
  4. FUROSEMIDE [Suspect]
     Indication: OEDEMA
     Dosage: 20 MG, DAILY
     Route: 048
     Dates: start: 20101012
  5. XIPAMIDE [Concomitant]
  6. DIGITOXIN TAB [Concomitant]
  7. TASIGNA [Suspect]
     Indication: CHRONIC MYELOID LEUKAEMIA
     Dosage: 200 MG, PER DAY
     Route: 048
     Dates: start: 20100512, end: 20110308
  8. RAMIPRIL [Suspect]
     Indication: HYPERTENSION
     Dosage: 5 MG, DAILY
     Route: 048
     Dates: start: 20070602
  9. MARCUMAR [Suspect]
     Indication: ARTERIAL OCCLUSIVE DISEASE
     Dosage: 3 MG, DAILY
     Route: 030
     Dates: start: 20080403

REACTIONS (39)
  - CARDIAC FAILURE [None]
  - VASCULAR DEMENTIA [None]
  - CAROTID ARTERY STENOSIS [None]
  - GASTRITIS EROSIVE [None]
  - INFECTED DERMAL CYST [None]
  - COLONIC POLYP [None]
  - ATRIAL FIBRILLATION [None]
  - CEREBRAL ARTERIOSCLEROSIS [None]
  - HEART VALVE INCOMPETENCE [None]
  - RENAL FAILURE [None]
  - HIATUS HERNIA [None]
  - PHIMOSIS [None]
  - PENILE OEDEMA [None]
  - CARDIOMEGALY [None]
  - EJECTION FRACTION DECREASED [None]
  - AORTIC STENOSIS [None]
  - GASTROINTESTINAL HAEMORRHAGE [None]
  - FALL [None]
  - FATIGUE [None]
  - AORTIC VALVE DISEASE [None]
  - ISCHAEMIC CARDIOMYOPATHY [None]
  - HAEMORRHAGE INTRACRANIAL [None]
  - DYSLIPIDAEMIA [None]
  - OEDEMA [None]
  - GASTROINTESTINAL ANGIODYSPLASIA [None]
  - PRURITUS GENERALISED [None]
  - URINARY HESITATION [None]
  - PERIPHERAL ARTERIAL OCCLUSIVE DISEASE [None]
  - HYPONATRAEMIA [None]
  - ANAEMIA [None]
  - GENERAL PHYSICAL HEALTH DETERIORATION [None]
  - OEDEMA PERIPHERAL [None]
  - MICTURITION URGENCY [None]
  - HYPERTENSION [None]
  - DIZZINESS [None]
  - CONFUSIONAL STATE [None]
  - ECZEMA [None]
  - CIRCULATORY COLLAPSE [None]
  - SCROTAL OEDEMA [None]
